FAERS Safety Report 14790123 (Version 4)
Quarter: 2018Q3

REPORT INFORMATION
  Report Type: Spontaneous
  Country: BR (occurrence: BR)
  Receive Date: 20180423
  Receipt Date: 20180824
  Transmission Date: 20181010
  Serious: Yes (Hospitalization, Other)
  Sender: FDA-Public Use
  Company Number: BR-AMGEN-BRASP2018054361

PATIENT
  Age: 67 Year
  Sex: Female

DRUGS (1)
  1. ENBREL [Suspect]
     Active Substance: ETANERCEPT
     Indication: RHEUMATOID ARTHRITIS
     Dosage: UNK
     Route: 065
     Dates: start: 20170101, end: 201709

REACTIONS (16)
  - Lung disorder [Unknown]
  - Loss of personal independence in daily activities [Not Recovered/Not Resolved]
  - Dysstasia [Unknown]
  - Feeling of despair [Unknown]
  - Fall [Unknown]
  - Pain [Unknown]
  - Peripheral swelling [Unknown]
  - Drug effect incomplete [Unknown]
  - Spinal pain [Unknown]
  - Hypokinesia [Not Recovered/Not Resolved]
  - Spinal fracture [Unknown]
  - Walking disability [Not Recovered/Not Resolved]
  - Cardiac disorder [Unknown]
  - Vascular pain [Unknown]
  - Joint swelling [Not Recovered/Not Resolved]
  - Arthritis [Unknown]
